FAERS Safety Report 9012788 (Version 1)
Quarter: 2013Q1

REPORT INFORMATION
  Report Type: Report from Study
  Country: MY (occurrence: MY)
  Receive Date: 20130114
  Receipt Date: 20130114
  Transmission Date: 20140127
  Serious: Yes (Hospitalization)
  Sender: FDA-Public Use
  Company Number: MY-BAYER-2013-001688

PATIENT
  Age: 60 Year
  Sex: Female
  Weight: 52.6 kg

DRUGS (1)
  1. BLINDED ACETYLSALICYLIC ACID({=100 MG) [Suspect]

REACTIONS (2)
  - Urinary tract infection [Not Recovered/Not Resolved]
  - Peptic ulcer [Not Recovered/Not Resolved]
